FAERS Safety Report 6760609-7 (Version None)
Quarter: 2010Q2

REPORT INFORMATION
  Report Type: 
  Country: None (occurrence: None)
  Receive Date: 20100608
  Receipt Date: 20100527
  Transmission Date: 20101027
  Serious: Yes (Death)
  Sender: FDA-Public Use
  Company Number: NO-PFIZER INC-2010060765

PATIENT
  Age: 44 Year
  Sex: Female

DRUGS (10)
  1. CHAMPIX [Suspect]
     Indication: SMOKING CESSATION THERAPY
     Dosage: 0.5-1 MG/DAILY
     Route: 048
  2. LIPITOR [Concomitant]
     Indication: HYPERLIPIDAEMIA
     Dosage: 40 MG, 1X/DAY
     Route: 048
  3. LIPITOR [Concomitant]
     Dosage: 80 MG, 1X/DAY
     Route: 048
     Dates: start: 20100110
  4. ZANTAC [Concomitant]
     Dosage: UNK
     Route: 048
  5. METOPROLOL [Concomitant]
     Dosage: UNK
     Route: 048
  6. SEREVENT [Concomitant]
     Dosage: UNK
  7. ALBYL-E [Concomitant]
     Dosage: 160 MG, 1X/DAY
     Route: 048
  8. BRICANYL [Concomitant]
     Dosage: 0.5 AS NECESSARY
  9. PARALGIN FORTE [Concomitant]
     Dosage: UNK
     Route: 048
  10. VALIUM [Concomitant]
     Dosage: 5 MG, UNK
     Route: 048

REACTIONS (1)
  - SUDDEN DEATH [None]
